FAERS Safety Report 7794196-1 (Version None)
Quarter: 2011Q3

REPORT INFORMATION
  Report Type: 
  Country: None (occurrence: None)
  Receive Date: 20110929
  Receipt Date: 20110916
  Transmission Date: 20111222
  Serious: Yes (Other)
  Sender: FDA-Public Use
  Company Number: 1046595

PATIENT
  Age: 74 Year
  Sex: Male

DRUGS (3)
  1. OXALIPLATIN [Suspect]
     Indication: METASTASIS
     Dates: start: 20081231
  2. FLUOROURACIL [Suspect]
     Indication: METASTASIS
     Dates: start: 20081231
  3. LEUCOVORIN CALCIUM [Suspect]
     Indication: METASTASIS
     Dates: start: 20081231

REACTIONS (5)
  - COORDINATION ABNORMAL [None]
  - MOTOR DYSFUNCTION [None]
  - HYPOAESTHESIA [None]
  - PERIPHERAL SENSORY NEUROPATHY [None]
  - BALANCE DISORDER [None]
